FAERS Safety Report 17229703 (Version 1)
Quarter: 2019Q4

REPORT INFORMATION
  Report Type: Spontaneous
  Country: US (occurrence: US)
  Receive Date: 20191210
  Receipt Date: 20191210
  Transmission Date: 20200122
  Serious: Yes (Other)
  Sender: FDA-Public Use
  Company Number: None

PATIENT
  Age: 64 Year
  Sex: Female
  Weight: 59.87 kg

DRUGS (1)
  1. DOXYCYCLINE HYCLATE. [Suspect]
     Active Substance: DOXYCYCLINE HYCLATE
     Indication: SINUSITIS
     Dosage: ?          QUANTITY:2 PILLS;??
     Route: 048
     Dates: start: 20191118, end: 20191119

REACTIONS (8)
  - Nausea [None]
  - Chills [None]
  - Influenza like illness [None]
  - Paranasal sinus discomfort [None]
  - Vomiting [None]
  - Intracranial pressure increased [None]
  - Pyrexia [None]
  - Hyperhidrosis [None]

NARRATIVE: CASE EVENT DATE: 20191118
